FAERS Safety Report 6726100-9 (Version None)
Quarter: 2010Q2

REPORT INFORMATION
  Report Type: 
  Country: None (occurrence: None)
  Receive Date: 20100514
  Receipt Date: 20100504
  Transmission Date: 20101027
  Serious: Yes (Other)
  Sender: FDA-Public Use
  Company Number: AU-PFIZER INC-2010039259

PATIENT
  Age: 57 Year
  Sex: Female

DRUGS (2)
  1. CHAMPIX [Suspect]
     Indication: SMOKING CESSATION THERAPY
     Dosage: 1 MG, 2X/DAY
     Route: 048
     Dates: start: 20100208, end: 20100323
  2. CIPRAMIL [Concomitant]
     Dosage: 20 MG, 1X/DAY
     Dates: start: 20070901

REACTIONS (1)
  - BLOOD PRESSURE INCREASED [None]
